FAERS Safety Report 21554070 (Version 6)
Quarter: 2023Q1

REPORT INFORMATION
  Report Type: Spontaneous
  Country: US (occurrence: US)
  Receive Date: 20221104
  Receipt Date: 20230120
  Transmission Date: 20230417
  Serious: No
  Sender: FDA-Public Use
  Company Number: US-BIOGEN-2022BI01167098

PATIENT
  Sex: Female

DRUGS (1)
  1. TYSABRI [Suspect]
     Active Substance: NATALIZUMAB
     Indication: Multiple sclerosis
     Route: 050
     Dates: start: 20210112

REACTIONS (8)
  - Product dose omission issue [Unknown]
  - Visual impairment [Not Recovered/Not Resolved]
  - Paraesthesia oral [Unknown]
  - Illness [Unknown]
  - Nasopharyngitis [Recovered/Resolved]
  - Eye disorder [Recovered/Resolved]
  - Fatigue [Unknown]
  - Headache [Unknown]
